FAERS Safety Report 10203429 (Version 2)
Quarter: 2014Q2

REPORT INFORMATION
  Report Type: Spontaneous
  Country: AU (occurrence: AU)
  Receive Date: 20140529
  Receipt Date: 20140611
  Transmission Date: 20141212
  Serious: Yes (Hospitalization)
  Sender: FDA-Public Use
  Company Number: AU-BAYER-2014-068092

PATIENT
  Age: 4 Year
  Sex: Male

DRUGS (1)
  1. KOGENATE FS [Suspect]
     Dosage: 500 IU, BID

REACTIONS (3)
  - Adenoidectomy [None]
  - Tonsillectomy [None]
  - Ear tube insertion [None]
